FAERS Safety Report 15840419 (Version 2)
Quarter: 2019Q1

REPORT INFORMATION
  Report Type: Spontaneous
  Country: JP (occurrence: JP)
  Receive Date: 20190118
  Receipt Date: 20190201
  Transmission Date: 20190417
  Serious: Yes (Other)
  Sender: FDA-Public Use
  Company Number: JP-ASTRAZENECA-2019SE06165

PATIENT
  Age: 90 Year
  Sex: Female

DRUGS (1)
  1. FORXIGA [Suspect]
     Active Substance: DAPAGLIFLOZIN
     Indication: TYPE 2 DIABETES MELLITUS
     Route: 048

REACTIONS (4)
  - Erythema [Recovered/Resolved]
  - Sepsis [Recovered/Resolved]
  - Pyelonephritis [Unknown]
  - Back pain [Recovered/Resolved]
